FAERS Safety Report 4420810-4 (Version None)
Quarter: 2004Q3

REPORT INFORMATION
  Report Type: 
  Country: None (occurrence: None)
  Receive Date: 20040809
  Receipt Date: 20031020
  Transmission Date: 20050211
  Serious: No
  Sender: FDA-Public Use
  Company Number: US-GLAXOSMITHKLINE-A0430899A

PATIENT
  Age: 81 Year
  Sex: Male

DRUGS (6)
  1. PAXIL [Suspect]
     Indication: DEPRESSION
     Dosage: 12.5MG PER DAY
     Route: 048
     Dates: start: 20030601, end: 20030930
  2. PAXIL [Suspect]
     Dosage: 10MG PER DAY
     Route: 048
     Dates: start: 20031001
  3. COMPAZINE [Suspect]
     Indication: NAUSEA
     Route: 065
  4. EFFEXOR [Concomitant]
     Dosage: 75MG TWICE PER DAY
  5. BUSPAR [Concomitant]
     Dosage: 5MG THREE TIMES PER DAY
  6. ASPIRIN [Concomitant]
     Dosage: 81MG PER DAY

REACTIONS (4)
  - DIARRHOEA [None]
  - FALL [None]
  - NAUSEA [None]
  - POLLAKIURIA [None]
